FAERS Safety Report 9673932 (Version 1)
Quarter: 2013Q4

REPORT INFORMATION
  Report Type: Spontaneous
  Country: US (occurrence: US)
  Receive Date: 20131106
  Receipt Date: 20131106
  Transmission Date: 20140711
  Serious: No
  Sender: FDA-Public Use
  Company Number: US-AMGEN-USASP2013072893

PATIENT
  Age: 71 Year
  Sex: Male

DRUGS (3)
  1. ENBREL [Suspect]
     Indication: RHEUMATOID ARTHRITIS
     Dosage: 50 MG, QWK
     Route: 065
     Dates: start: 20100401
  2. LEFLUNOMIDE [Concomitant]
     Dosage: 10 UNK, QD
     Route: 048
     Dates: start: 2010
  3. METHOTREXATE [Concomitant]
     Dosage: UNK UNK, QWK
     Dates: start: 2008, end: 2010

REACTIONS (3)
  - Pain in extremity [Not Recovered/Not Resolved]
  - Arthralgia [Not Recovered/Not Resolved]
  - Paraesthesia [Not Recovered/Not Resolved]
